FAERS Safety Report 21518837 (Version 7)
Quarter: 2024Q2

REPORT INFORMATION
  Report Type: Spontaneous
  Country: JP (occurrence: None)
  Receive Date: 20221028
  Receipt Date: 20240425
  Transmission Date: 20240716
  Serious: Yes (Death, Disabling)
  Sender: FDA-Public Use
  Company Number: 2022A355551

PATIENT
  Age: 85 Year
  Sex: Female
  Weight: 52 kg

DRUGS (6)
  1. LYNPARZA [Suspect]
     Active Substance: OLAPARIB
     Indication: Fallopian tube cancer
     Route: 048
     Dates: start: 20210519, end: 20220624
  2. HERBALS [Concomitant]
     Active Substance: HERBALS
     Indication: Prophylaxis
     Route: 048
  3. MAGNESIUM OXIDE [Concomitant]
     Active Substance: MAGNESIUM OXIDE
     Indication: Prophylaxis
     Route: 048
  4. FEXOFENADINE HYDROCHLORIDE [Concomitant]
     Active Substance: FEXOFENADINE HYDROCHLORIDE
     Route: 048
  5. BETAMETHASONE [Concomitant]
     Active Substance: BETAMETHASONE\BETAMETHASONE DIPROPIONATE
     Dosage: DOSE UNKNOWN
     Route: 062
  6. PREDNISOLONE [Concomitant]
     Active Substance: PREDNISOLONE
     Dosage: DOSE UNKNOWN
     Route: 047

REACTIONS (4)
  - Fungal infection [Fatal]
  - Polyarteritis nodosa [Not Recovered/Not Resolved]
  - Lymphadenitis [Recovering/Resolving]
  - Platelet count decreased [Not Recovered/Not Resolved]

NARRATIVE: CASE EVENT DATE: 20220401
